FAERS Safety Report 24043723 (Version 1)
Quarter: 2024Q3

REPORT INFORMATION
  Report Type: Spontaneous
  Country: FR (occurrence: FR)
  Receive Date: 20240703
  Receipt Date: 20240703
  Transmission Date: 20241016
  Serious: Yes (Congenital Anomaly, Other)
  Sender: CELLTRION
  Company Number: FR-CELLTRION INC.-2024FR015636

PATIENT

DRUGS (1)
  1. INFLIXIMAB [Suspect]
     Active Substance: INFLIXIMAB
     Indication: Crohn^s disease
     Dosage: 1 INJECTION, EVERY 8 WEEKS (CUMULATIVE DOSE TO FIRST REACTION: 2 {DF} / GESTATION PERIOD AT TIME OF
     Route: 064
     Dates: start: 202208, end: 202210

REACTIONS (2)
  - Transposition of the great vessels [Not Recovered/Not Resolved]
  - Foetal exposure during pregnancy [Unknown]

NARRATIVE: CASE EVENT DATE: 20221215
